FAERS Safety Report 7015209-0 (Version None)
Quarter: 2010Q3

REPORT INFORMATION
  Report Type: 
  Country: None (occurrence: None)
  Receive Date: 20100927
  Receipt Date: 20100917
  Transmission Date: 20110219
  Serious: Yes (Hospitalization)
  Sender: FDA-Public Use
  Company Number: US-SANOFI-AVENTIS-2010SA049274

PATIENT
  Age: 66 Year
  Sex: Male
  Weight: 108.86 kg

DRUGS (11)
  1. MULTAQ [Suspect]
     Indication: ATRIAL FIBRILLATION
     Route: 048
     Dates: start: 20100709, end: 20100724
  2. MULTAQ [Suspect]
     Route: 048
     Dates: start: 20100802, end: 20100804
  3. PLAVIX [Suspect]
     Indication: CEREBROVASCULAR ACCIDENT PROPHYLAXIS
     Route: 048
     Dates: start: 20100709, end: 20100724
  4. PLAVIX [Suspect]
     Indication: ATRIAL FIBRILLATION
     Route: 048
     Dates: start: 20100709, end: 20100724
  5. DIGOXIN [Suspect]
     Indication: ATRIAL FIBRILLATION
     Route: 065
     Dates: start: 20100709, end: 20100724
  6. SIMVASTATIN [Concomitant]
     Dates: end: 20100724
  7. ASPIRIN [Concomitant]
  8. MULTI-VITAMINS [Concomitant]
  9. CELEBREX [Concomitant]
  10. FINASTERIDE [Concomitant]
  11. LOPRESSOR [Concomitant]

REACTIONS (3)
  - HYPOAESTHESIA [None]
  - PAIN IN EXTREMITY [None]
  - URTICARIA [None]
